FAERS Safety Report 24924915 (Version 1)
Quarter: 2025Q1

REPORT INFORMATION
  Report Type: Report from Study
  Country: US (occurrence: US)
  Receive Date: 20250204
  Receipt Date: 20250204
  Transmission Date: 20250409
  Serious: No
  Sender: EXELIXIS
  Company Number: US-EXELIXIS-CABO-24076296

PATIENT
  Sex: Male

DRUGS (1)
  1. CABOMETYX [Suspect]
     Active Substance: CABOZANTINIB S-MALATE
     Indication: Neoplasm malignant
     Dosage: 60 MG, QD
     Route: 048
     Dates: start: 202402

REACTIONS (14)
  - Nasal mucosal blistering [Unknown]
  - Blister [Unknown]
  - Tongue blistering [Unknown]
  - Erythema [Unknown]
  - Skin exfoliation [Unknown]
  - Hair colour changes [Unknown]
  - Rash pruritic [Unknown]
  - Pain in extremity [Unknown]
  - Dry skin [Unknown]
  - Hypoaesthesia oral [Unknown]
  - Ingrowing nail [Unknown]
  - Sensitive skin [Unknown]
  - Alopecia [Unknown]
  - Scrotal dermatitis [Unknown]
